FAERS Safety Report 8211801-6 (Version None)
Quarter: 2012Q1

REPORT INFORMATION
  Report Type: 
  Country: None (occurrence: None)
  Receive Date: 20120315
  Receipt Date: 20120313
  Transmission Date: 20120608
  Serious: Yes (Death, Hospitalization)
  Sender: FDA-Public Use
  Company Number: IT-BAYER-2012-024701

PATIENT
  Age: 90 Year
  Sex: Female

DRUGS (2)
  1. CARVEDILOL [Concomitant]
     Indication: HYPERTENSION
     Dosage: UNK
  2. ASPIRIN [Suspect]
     Indication: VALVULOPLASTY CARDIAC
     Dosage: 100 MG, QD
     Route: 048
     Dates: start: 20010602, end: 20110602

REACTIONS (2)
  - COMA [None]
  - SUBDURAL HAEMORRHAGE [None]
